FAERS Safety Report 5064277-4 (Version None)
Quarter: 2006Q3

REPORT INFORMATION
  Report Type: 
  Country: None (occurrence: None)
  Receive Date: 20060706
  Receipt Date: 20060311
  Transmission Date: 20061208
  Serious: Yes (Hospitalization)
  Sender: FDA-Public Use
  Company Number: 489

PATIENT
  Sex: Female

DRUGS (3)
  1. PAROXETINE HYDROCHLORIDE [Suspect]
     Indication: DEPRESSION
     Dosage: ORAL - 40 MG/DAY
     Route: 048
     Dates: start: 20060227
  2. LISINOPRIL [Concomitant]
  3. OMEPRAZOLE [Concomitant]

REACTIONS (9)
  - ANXIETY [None]
  - CONVULSION [None]
  - DISORIENTATION [None]
  - HEADACHE [None]
  - NAUSEA [None]
  - OBSESSIVE-COMPULSIVE PERSONALITY DISORDER [None]
  - PANIC ATTACK [None]
  - STRESS [None]
  - THINKING ABNORMAL [None]
